FAERS Safety Report 7922094-9 (Version None)
Quarter: 2011Q4

REPORT INFORMATION
  Report Type: 
  Country: None (occurrence: None)
  Receive Date: 20111117
  Receipt Date: 20110412
  Transmission Date: 20120403
  Serious: No
  Sender: FDA-Public Use
  Company Number: US-AMGEN-USASP2011019373

PATIENT
  Age: 51 Year
  Sex: Female

DRUGS (1)
  1. ENBREL [Suspect]
     Indication: RHEUMATOID ARTHRITIS
     Dosage: 50 MG, QWK
     Dates: start: 20110202, end: 20110404

REACTIONS (5)
  - ABDOMINAL PAIN UPPER [None]
  - FATIGUE [None]
  - COUGH [None]
  - CHILLS [None]
  - DIARRHOEA [None]
